FAERS Safety Report 7964089-5 (Version None)
Quarter: 2011Q4

REPORT INFORMATION
  Report Type: 
  Country: None (occurrence: None)
  Receive Date: 20111206
  Receipt Date: 20111123
  Transmission Date: 20120403
  Serious: Yes (Hospitalization)
  Sender: FDA-Public Use
  Company Number: 1000025292

PATIENT
  Age: 66 Year
  Sex: Female
  Weight: 67 kg

DRUGS (5)
  1. LANSOPRAZOLE [Concomitant]
  2. PRAVASTATIN [Suspect]
     Indication: BLOOD CHOLESTEROL
     Dosage: 40 MG (40 MG,1 IN 1 D),ORAL
     Route: 048
     Dates: end: 20111026
  3. RAMIPRIL [Suspect]
     Indication: BLOOD PRESSURE
     Dosage: 10 MG (10 MG, IN 1 D),ORAL
     Route: 048
     Dates: end: 20111026
  4. MEMANTINE HYDROCHLORIDE [Suspect]
     Indication: DEMENTIA
     Dosage: 20 MG (10 MG,2 IN 1 D),ORAL
     Route: 048
     Dates: end: 20111025
  5. AMLODIPINE [Suspect]
     Indication: BLOOD PRESSURE
     Dosage: 5 MG (5 MG,1 IN 1 D),ORAL
     Route: 048
     Dates: end: 20111025

REACTIONS (1)
  - PANCREATITIS ACUTE [None]
